FAERS Safety Report 24893641 (Version 1)
Quarter: 2025Q1

REPORT INFORMATION
  Report Type: Other
  Country: DE (occurrence: DE)
  Receive Date: 20250128
  Receipt Date: 20250128
  Transmission Date: 20250408
  Serious: Yes (Other)
  Sender: MACLEODS
  Company Number: DE-EMB-M202306431-1

PATIENT

DRUGS (12)
  1. CANDESARTAN [Suspect]
     Active Substance: CANDESARTAN
     Indication: Hypertension
     Route: 064
     Dates: start: 202306, end: 202308
  2. EZETIMIBE [Suspect]
     Active Substance: EZETIMIBE
     Indication: Ischaemic heart disease prophylaxis
     Route: 064
     Dates: start: 202306, end: 202308
  3. PANTOPRAZOLE [Suspect]
     Active Substance: PANTOPRAZOLE
     Indication: Prophylaxis against gastrointestinal ulcer
     Dosage: GESTATION PERIOD AT TIME OF EXPOSURE: 0 WK
     Route: 064
     Dates: start: 202306, end: 202402
  4. ROSUVASTATIN [Suspect]
     Active Substance: ROSUVASTATIN
     Indication: Ischaemic heart disease prophylaxis
     Route: 064
     Dates: start: 202306, end: 202308
  5. BISOPROLOL [Suspect]
     Active Substance: BISOPROLOL
     Indication: Ischaemic heart disease prophylaxis
     Dosage: GESTATION PERIOD AT TIME OF EXPOSURE: 0 WK
     Route: 064
     Dates: start: 202306, end: 202402
  6. DIPHTHERIA AND TETANUS TOXOIDS AND PERTUSSIS VACCINE [Suspect]
     Active Substance: DIPHTHERIA AND TETANUS TOXOIDS AND PERTUSSIS VACCINE
     Indication: Immunisation
     Route: 064
  7. DIPHTHERIA AND TETANUS TOXOIDS AND PERTUSSIS VACCINE [Suspect]
     Active Substance: DIPHTHERIA AND TETANUS TOXOIDS AND PERTUSSIS VACCINE
     Indication: Prophylaxis of neural tube defect
  8. ASPIRIN [Suspect]
     Active Substance: ASPIRIN
     Indication: Thrombosis prophylaxis
     Dosage: GESTATION PERIOD AT TIME OF EXPOSURE: 0 WK
     Route: 064
     Dates: start: 202306, end: 202402
  9. INFLUENZA VIRUS VACCINE [Suspect]
     Active Substance: INFLUENZA VIRUS VACCINE
     Indication: Immunisation
     Route: 064
  10. FOLIC ACID [Suspect]
     Active Substance: FOLIC ACID
     Indication: Prophylaxis of neural tube defect
     Route: 064
     Dates: start: 202307, end: 202402
  11. NICOTINE [Suspect]
     Active Substance: NICOTINE
     Indication: Tobacco user
     Route: 064
  12. SIMVASTATIN [Suspect]
     Active Substance: SIMVASTATIN
     Indication: Ischaemic heart disease prophylaxis
     Dosage: GESTATION PERIOD AT TIME OF EXPOSURE: 8 WK
     Route: 064
     Dates: start: 202308, end: 202402

REACTIONS (2)
  - Small for dates baby [Recovering/Resolving]
  - Foetal exposure during pregnancy [Unknown]

NARRATIVE: CASE EVENT DATE: 20240201
